FAERS Safety Report 10247199 (Version 1)
Quarter: 2014Q1

REPORT INFORMATION
  Report Type: Spontaneous
  Country: US (occurrence: None)
  Receive Date: 20140306
  Receipt Date: 20140306
  Transmission Date: 20141002
  Serious: Yes (Hospitalization, Other)
  Sender: FDA-Public Use
  Company Number: 163-21880-13043559

PATIENT
  Age: 82 Year
  Sex: Female

DRUGS (10)
  1. REVLIMID (LENALIDOMIDE) (25 MILLIGRAM, CAPSULES) [Suspect]
     Indication: PLASMA CELL MYELOMA
     Route: 048
     Dates: start: 20130402, end: 20130417
  2. KLONOPIN (CLONAZEPAM) (TABLETS) [Concomitant]
  3. LOSARTAN POTASSIUM (TABLETS) [Concomitant]
  4. DIOVAN (VALSARTAN) (TABLETS) [Concomitant]
  5. ENALAPRIL-HYDROCHLOROTHIAZIDE (VASERETIC) (TABLETS) [Concomitant]
  6. DILTIAZEM HCL (DILTIAZEM HYDROCHLORIDE) (SUSTAINED-RELEASE CAPSULE) [Concomitant]
  7. BUPROPION HCL (BUPROPION HYDROCHLORIDE) (TABLETS) [Concomitant]
  8. PRAMIPEXOLE (TABLETS) [Concomitant]
  9. WARFARIN SODIUM (TABLETS) [Concomitant]
  10. VITAMIN D3 (COLECALCIFEROL) (TABLETS) [Concomitant]

REACTIONS (6)
  - Kidney infection [None]
  - Face oedema [None]
  - Drug hypersensitivity [None]
  - Herpes zoster [None]
  - Malaise [None]
  - Dermatitis allergic [None]
